FAERS Safety Report 9563917 (Version 2)
Quarter: 2013Q3

REPORT INFORMATION
  Report Type: Report from Study
  Country: US (occurrence: US)
  Receive Date: 20130927
  Receipt Date: 20130927
  Transmission Date: 20140515
  Serious: Yes (Hospitalization, Other)
  Sender: FDA-Public Use
  Company Number: US-ROCHE-1245789

PATIENT
  Age: 89 Year
  Sex: Female

DRUGS (2)
  1. XELODA [Suspect]
     Indication: COLON CANCER STAGE III
     Route: 048
     Dates: start: 20130601, end: 20130801
  2. XELODA [Suspect]
     Route: 048
     Dates: start: 20130801

REACTIONS (11)
  - Fall [Unknown]
  - Femur fracture [Recovering/Resolving]
  - Gingival ulceration [Not Recovered/Not Resolved]
  - Weight decreased [Recovering/Resolving]
  - Paraesthesia [Not Recovered/Not Resolved]
  - Pruritus [Not Recovered/Not Resolved]
  - Diarrhoea [Recovering/Resolving]
  - Erythema [Recovering/Resolving]
  - Blister [Recovering/Resolving]
  - Alopecia [Not Recovered/Not Resolved]
  - Myalgia [Not Recovered/Not Resolved]
